FAERS Safety Report 7896435 (Version 2)
Quarter: 2012Q4

REPORT INFORMATION
  Report Type: 
  Country: US (occurrence: US)
  Receive Date: 20110413
  Receipt Date: 20121004
  Transmission Date: 20130627
  Serious: Yes (Congenital Anomaly)
  Sender: FDA-Public Use
  Company Number: US-US-EMD SERONO, INC.-7052149

PATIENT
  Age: 21 None

DRUGS (1)
  1. REBIF [Suspect]
     Route: 064

REACTIONS (2)
  - Skull malformation [Unknown]
  - Foetal exposure during pregnancy [Recovered/Resolved]
